FAERS Safety Report 8219527-X (Version None)
Quarter: 2012Q1

REPORT INFORMATION
  Report Type: 
  Country: None (occurrence: None)
  Receive Date: 20120319
  Receipt Date: 20120314
  Transmission Date: 20120608
  Serious: Yes (Death, Other)
  Sender: FDA-Public Use
  Company Number: PHHY2012BG022218

PATIENT
  Sex: Male

DRUGS (9)
  1. MEROPENEM [Suspect]
     Indication: BEZOAR
  2. ITRACONAZOLE [Suspect]
     Indication: RENAL FAILURE
  3. CORTICOSTEROIDS [Concomitant]
  4. MEROPENEM [Suspect]
     Indication: NEPHRITIS
  5. ITRACONAZOLE [Suspect]
     Indication: NEPHRITIS
  6. FLUCONAZOLE [Concomitant]
  7. ITRACONAZOLE [Suspect]
     Indication: BEZOAR
  8. TPN [Concomitant]
  9. MEROPENEM [Suspect]
     Indication: RENAL FAILURE

REACTIONS (6)
  - SOMNOLENCE [None]
  - CANDIDIASIS [None]
  - PYREXIA [None]
  - DECREASED APPETITE [None]
  - OLIGURIA [None]
  - DEATH [None]
